FAERS Safety Report 9675774 (Version 3)
Quarter: 2013Q4

REPORT INFORMATION
  Report Type: Spontaneous
  Country: CH (occurrence: CH)
  Receive Date: 20131107
  Receipt Date: 20131122
  Transmission Date: 20140711
  Serious: Yes (Death, Other)
  Sender: FDA-Public Use
  Company Number: CH-PFIZER INC-2013311292

PATIENT
  Age: 78 Year
  Sex: Male

DRUGS (17)
  1. AMLODIPIN [Suspect]
     Dosage: 5 MG, 1X/DAY
     Route: 048
  2. INSPRA [Suspect]
     Dosage: 25 MG, 1X/DAY
     Route: 048
  3. TORASEMIDE [Suspect]
     Dosage: 5 MG, 1X/DAY
     Route: 048
  4. METOPROLOL TARTRATE [Interacting]
     Indication: ESSENTIAL HYPERTENSION
     Dosage: 150 MG, 1X/DAY
     Route: 048
     Dates: start: 20131019, end: 20131019
  5. PASPERTIN [Interacting]
     Dosage: 10 MG, 3X/DAY
     Route: 040
     Dates: start: 20131014
  6. ENALAPRIL [Suspect]
     Dosage: 7.5 MG, 2X/DAY
     Route: 048
  7. PHYSIOTENS [Suspect]
     Dosage: 0.2 MG, 2X/DAY (IF SYSTOLIC VALUE } 120 MMHG)
     Route: 048
  8. CLOPIDOGREL [Concomitant]
     Dosage: 75 MG, 1X/DAY
     Route: 048
  9. MG 5 - LONGORAL [Concomitant]
     Dosage: 12 MMOL, 1X/DAY
  10. POTASSIUM [Concomitant]
     Dosage: 30 MMOL, 3X/DAY
     Route: 048
  11. CRESTOR [Concomitant]
     Dosage: 10 MG, 1X/DAY
     Route: 048
  12. VI-DE 3 [Concomitant]
     Dosage: 800 IU, 1X/DAY
     Route: 048
  13. NEXIUM [Concomitant]
     Dosage: 40 MG, 2X/DAY
     Route: 041
  14. CLEXANE [Concomitant]
     Dosage: 40MG 1X/24H
     Route: 058
  15. CERNEVIT [Concomitant]
  16. ADDAMEL [Concomitant]
  17. OLIMEL [Concomitant]
     Dosage: 1500 ML, 1X/DAY

REACTIONS (8)
  - Drug administration error [Fatal]
  - Drug interaction [Fatal]
  - Death [Fatal]
  - Hypotension [Fatal]
  - Syncope [Fatal]
  - Loss of consciousness [Fatal]
  - Anuria [Fatal]
  - Vomiting [Unknown]
